FAERS Safety Report 6519597-0 (Version None)
Quarter: 2009Q4

REPORT INFORMATION
  Report Type: 
  Country: None (occurrence: None)
  Receive Date: 20091228
  Receipt Date: 20091214
  Transmission Date: 20100525
  Serious: Yes (Hospitalization)
  Sender: FDA-Public Use
  Company Number: IN-MYLANLABS-2009S1021319

PATIENT
  Age: 1 Decade
  Sex: Male
  Weight: 5 kg

DRUGS (4)
  1. CLONIDINE [Suspect]
     Indication: SPINAL ANAESTHESIA
     Dosage: 0.53ML OF CLONIDINE 5MCG AND HYPERBARIC BUPIVACAINE 2.5MG (0.5%)
     Route: 037
  2. PROPOFOL [Concomitant]
     Dosage: 10MG BOLUS FOLLOWED BY 25 MCG/KG/MIN INFUSION
  3. PROPOFOL [Concomitant]
     Dosage: 10MG BOLUS FOLLOWED BY 25 MCG/KG/MIN INFUSION
  4. BUPIVACAINE [Concomitant]
     Indication: SPINAL ANAESTHESIA
     Dosage: 0.53ML OF CLONIDINE 5MCG AND HYPERBARIC BUPIVACAINE 2.5MG (0.5%)
     Route: 037

REACTIONS (3)
  - HYPOTONIA [None]
  - RESPIRATORY DEPRESSION [None]
  - SEDATION [None]
